FAERS Safety Report 19685146 (Version 2)
Quarter: 2021Q3

REPORT INFORMATION
  Report Type: Spontaneous
  Country: AR (occurrence: AR)
  Receive Date: 20210811
  Receipt Date: 20210928
  Transmission Date: 20211014
  Serious: No
  Sender: FDA-Public Use
  Company Number: AR-PFIZER INC-2021893040

PATIENT
  Age: 43 Year
  Sex: Male

DRUGS (1)
  1. SOMAVERT [Suspect]
     Active Substance: PEGVISOMANT
     Indication: ACROMEGALY
     Dosage: 15 MG, DAILY, 7 TIMES PER WEEK
     Dates: start: 20110207

REACTIONS (2)
  - Needle issue [Not Recovered/Not Resolved]
  - Incorrect dose administered by device [Unknown]

NARRATIVE: CASE EVENT DATE: 2021
